FAERS Safety Report 11389820 (Version 2)
Quarter: 2015Q3

REPORT INFORMATION
  Report Type: Report from Study
  Country: CA (occurrence: CA)
  Receive Date: 20150818
  Receipt Date: 20150820
  Transmission Date: 20151125
  Serious: Yes (Hospitalization)
  Sender: FDA-Public Use
  Company Number: CA-ROCHE-1563498

PATIENT
  Age: 71 Year
  Sex: Female

DRUGS (18)
  1. ELTROXIN [Concomitant]
     Active Substance: LEVOTHYROXINE
  2. ACTEMRA [Suspect]
     Active Substance: TOCILIZUMAB
     Indication: RHEUMATOID ARTHRITIS
     Route: 042
     Dates: start: 20120627
  3. ACTEMRA [Suspect]
     Active Substance: TOCILIZUMAB
     Route: 042
     Dates: start: 20141127
  4. ACTEMRA [Suspect]
     Active Substance: TOCILIZUMAB
     Route: 042
     Dates: start: 20150506
  5. RAMIPRIL. [Concomitant]
     Active Substance: RAMIPRIL
  6. PREDNISONE. [Concomitant]
     Active Substance: PREDNISONE
     Route: 065
  7. TRAZODONE [Concomitant]
     Active Substance: TRAZODONE HYDROCHLORIDE
  8. ACTEMRA [Suspect]
     Active Substance: TOCILIZUMAB
     Route: 042
     Dates: start: 20150813
  9. TYLENOL WITH CODEINE [Concomitant]
     Active Substance: ACETAMINOPHEN\CODEINE PHOSPHATE
  10. ACTEMRA [Suspect]
     Active Substance: TOCILIZUMAB
     Route: 042
     Dates: start: 20141002
  11. DIGOXIN. [Concomitant]
     Active Substance: DIGOXIN
  12. LASIX [Concomitant]
     Active Substance: FUROSEMIDE
  13. AMIODARONE [Concomitant]
     Active Substance: AMIODARONE
  14. FOLIC ACID. [Concomitant]
     Active Substance: FOLIC ACID
  15. LIPIDIL EZ [Concomitant]
     Active Substance: FENOFIBRATE
  16. COUMADIN [Concomitant]
     Active Substance: WARFARIN SODIUM
  17. ACTEMRA [Suspect]
     Active Substance: TOCILIZUMAB
     Route: 042
     Dates: start: 20140213
  18. LOSEC [Concomitant]
     Active Substance: OMEPRAZOLE

REACTIONS (2)
  - Blood pressure decreased [Unknown]
  - Cardiac failure congestive [Unknown]

NARRATIVE: CASE EVENT DATE: 20150319
